FAERS Safety Report 14229287 (Version 4)
Quarter: 2018Q1

REPORT INFORMATION
  Report Type: Spontaneous
  Country: US (occurrence: US)
  Receive Date: 20171128
  Receipt Date: 20180321
  Transmission Date: 20180508
  Serious: No
  Sender: FDA-Public Use
  Company Number: US-PFIZER INC-2017507139

PATIENT
  Age: 60 Year
  Sex: Female

DRUGS (3)
  1. IBRANCE [Suspect]
     Active Substance: PALBOCICLIB
     Dosage: 125 MG, CYCLIC (M-FX 21D Q 28 D)
     Route: 048
     Dates: start: 20170908
  2. IBRANCE [Suspect]
     Active Substance: PALBOCICLIB
     Dosage: 125 MG, CYCLIC (DAY 1-D21 Q 28D, 3 WEEKS AND ONE WEEK OFF)
     Route: 048
  3. IBRANCE [Suspect]
     Active Substance: PALBOCICLIB
     Indication: BREAST CANCER FEMALE
     Dosage: 75 MG, UNK

REACTIONS (7)
  - Mood altered [Unknown]
  - Depression [Unknown]
  - Hypoaesthesia [Unknown]
  - Nail injury [Unknown]
  - Diarrhoea [Unknown]
  - Insomnia [Unknown]
  - Muscle spasms [Unknown]
